FAERS Safety Report 8607373-4 (Version None)
Quarter: 2012Q3

REPORT INFORMATION
  Report Type: 
  Country: None (occurrence: None)
  Receive Date: 20120821
  Receipt Date: 20120817
  Transmission Date: 20120928
  Serious: No
  Sender: FDA-Public Use
  Company Number: US-PFIZER INC-2012203052

PATIENT
  Age: 54 Year
  Sex: Female
  Weight: 58.05 kg

DRUGS (8)
  1. VITAMIN TAB [Concomitant]
     Indication: ANAEMIA
  2. CALCIUM WITH VITAMIN D [Concomitant]
     Indication: ANAEMIA
  3. POTASSIUM [Concomitant]
     Dosage: UNK
  4. CHANTIX [Suspect]
     Indication: SMOKING CESSATION THERAPY
     Dosage: UNK
     Route: 048
  5. GLUCOSAMINE W/CHONDROITIN SULFATES [Concomitant]
     Indication: ARTHRALGIA
     Dosage: UNK
  6. CHANTIX [Suspect]
     Dosage: UNK
     Route: 048
     Dates: start: 20120601
  7. CALCIUM WITH VITAMIN D [Concomitant]
     Indication: POSTMENOPAUSE
     Dosage: UNK
  8. VITAMIN TAB [Concomitant]
     Indication: POSTMENOPAUSE
     Dosage: UNK, DAILY

REACTIONS (2)
  - SLEEP DISORDER [None]
  - ABNORMAL DREAMS [None]
